FAERS Safety Report 7231897-8 (Version None)
Quarter: 2011Q1

REPORT INFORMATION
  Report Type: 
  Country: None (occurrence: None)
  Receive Date: 20110118
  Receipt Date: 20110111
  Transmission Date: 20110831
  Serious: Yes (Hospitalization, Other)
  Sender: FDA-Public Use
  Company Number: US-MILLENNIUM PHARMACEUTICALS, INC.-2011-00129

PATIENT
  Age: 80 Year
  Sex: Female
  Weight: 67.12 kg

DRUGS (1)
  1. VELCADE [Suspect]
     Indication: MULTIPLE MYELOMA
     Dosage: 2.2 MG, CYCLIC
     Route: 040
     Dates: start: 20101109, end: 20101220

REACTIONS (1)
  - GASTROINTESTINAL NECROSIS [None]
